FAERS Safety Report 7391991 (Version 2)
Quarter: 2015Q1

REPORT INFORMATION
  Report Type: Spontaneous
  Country: CA (occurrence: CA)
  Receive Date: 20100518
  Receipt Date: 20150310
  Transmission Date: 20150721
  Serious: Yes (Life-Threatening, Other)
  Sender: FDA-Public Use
  Company Number: CA-B.I. PHARMACEUTICALS,INC./RIDGEFIELD-2010-DE-02682GD

PATIENT
  Age: 2 Year
  Sex: Male

DRUGS (1)
  1. CLONIDINE. [Suspect]
     Active Substance: CLONIDINE
     Indication: PRODUCT USED FOR UNKNOWN INDICATION
     Route: 048

REACTIONS (8)
  - Respiratory depression [Unknown]
  - Hypotonia [Unknown]
  - Miosis [Unknown]
  - Atrioventricular block first degree [Unknown]
  - Toxicity to various agents [Unknown]
  - Hypotension [Unknown]
  - Accidental exposure to product by child [Unknown]
  - Lethargy [Recovered/Resolved]
